FAERS Safety Report 16884590 (Version 3)
Quarter: 2019Q4

REPORT INFORMATION
  Report Type: Spontaneous
  Country: JP (occurrence: JP)
  Receive Date: 20191004
  Receipt Date: 20191017
  Transmission Date: 20200122
  Serious: No
  Sender: FDA-Public Use
  Company Number: JP-MYE-2019M1091010AA

PATIENT
  Age: 81 Year
  Sex: Female

DRUGS (7)
  1. EBUTOL [Suspect]
     Active Substance: ETHAMBUTOL HYDROCHLORIDE
     Indication: ATYPICAL MYCOBACTERIAL INFECTION
     Dosage: 750 MILLIGRAM, QD
     Route: 048
     Dates: start: 20190605
  2. KLARICID TABLETS 200MG [Suspect]
     Active Substance: CLARITHROMYCIN
     Indication: ATYPICAL MYCOBACTERIAL INFECTION
     Dosage: 400 MILLIGRAM, BID
     Route: 048
     Dates: start: 20190605
  3. RIFADIN [Suspect]
     Active Substance: RIFAMPIN
     Indication: ATYPICAL MYCOBACTERIAL INFECTION
     Dosage: 450 MILLIGRAM, QD
     Route: 048
     Dates: start: 20190605
  4. THYRADIN S [Concomitant]
     Active Substance: LEVOTHYROXINE SODIUM
     Indication: HYPOTHYROIDISM
     Dosage: 100 MICROGRAM, QD
     Route: 048
     Dates: start: 2016
  5. THYRADIN S [Concomitant]
     Active Substance: LEVOTHYROXINE SODIUM
     Dosage: 125 MICROGRAM, QD
     Route: 048
     Dates: start: 20190731
  6. EDIROL [Concomitant]
     Active Substance: ELDECALCITOL
     Indication: OSTEOPOROSIS
     Dosage: 0.75 MICROGRAM, QD
     Route: 048
     Dates: start: 2016
  7. LOCHOL                             /01224502/ [Concomitant]
     Active Substance: FLUVASTATIN SODIUM
     Indication: DYSLIPIDAEMIA
     Dosage: 20 MILLIGRAM, QD
     Route: 048
     Dates: start: 2016

REACTIONS (1)
  - Thyroid function test abnormal [Unknown]

NARRATIVE: CASE EVENT DATE: 20190618
